FAERS Safety Report 6430824-0 (Version None)
Quarter: 2009Q4

REPORT INFORMATION
  Report Type: 
  Country: None (occurrence: None)
  Receive Date: 20091106
  Receipt Date: 20091030
  Transmission Date: 20100525
  Serious: Yes (Other)
  Sender: FDA-Public Use
  Company Number: GXKR2009DE10770

PATIENT
  Age: 71 Year
  Sex: Female

DRUGS (2)
  1. METFORMIN HEXAL (NGX) [Suspect]
     Dosage: 1000 MG, BID
     Route: 048
     Dates: start: 20090920, end: 20090928
  2. RAMIPRIL [Concomitant]
     Dosage: 5 MG, QD
     Route: 048

REACTIONS (6)
  - ABDOMINAL PAIN [None]
  - CHROMATURIA [None]
  - DIARRHOEA [None]
  - NAUSEA [None]
  - RENAL PAIN [None]
  - SYNCOPE [None]
